FAERS Safety Report 14984359 (Version 1)
Quarter: 2018Q2

REPORT INFORMATION
  Report Type: Report from Study
  Country: PT (occurrence: PT)
  Receive Date: 20180607
  Receipt Date: 20180607
  Transmission Date: 20180711
  Serious: Yes (Life-Threatening, Hospitalization, Other)
  Sender: FDA-Public Use
  Company Number: PT-JAZZ-2018-PT-005697

PATIENT
  Age: 22 Year
  Sex: Female
  Weight: 67 kg

DRUGS (5)
  1. MYCOPHENOLATE [Concomitant]
     Active Substance: MYCOPHENOLIC ACID
     Indication: IMMUNOSUPPRESSION
     Dosage: 2000 MG, QD
     Route: 042
     Dates: start: 20180221
  2. DEFITELIO [Suspect]
     Active Substance: DEFIBROTIDE SODIUM
     Indication: VENOOCCLUSIVE DISEASE
     Dosage: 25 MG/KG, QD
     Dates: start: 20180309, end: 20180322
  3. MICAFUNGIN [Concomitant]
     Active Substance: MICAFUNGIN
     Indication: PROPHYLAXIS
     Dosage: 50 MG, QD
     Route: 042
     Dates: start: 20180313
  4. ACICLOVIR [Concomitant]
     Active Substance: ACYCLOVIR
     Indication: PROPHYLAXIS
     Dosage: 850 MG, QD
     Route: 042
     Dates: start: 20180218
  5. TACROLIMUS. [Concomitant]
     Active Substance: TACROLIMUS
     Indication: IMMUNOSUPPRESSION
     Dosage: 48 MG, QD
     Route: 042
     Dates: start: 20180218

REACTIONS (2)
  - Respiratory failure [Recovered/Resolved]
  - Organising pneumonia [Recovered/Resolved]

NARRATIVE: CASE EVENT DATE: 20180322
